FAERS Safety Report 4767292-0 (Version None)
Quarter: 2005Q3

REPORT INFORMATION
  Report Type: 
  Country: None (occurrence: None)
  Receive Date: 20050913
  Receipt Date: 20050909
  Transmission Date: 20060218
  Serious: Yes (Hospitalization, Other)
  Sender: FDA-Public Use
  Company Number: US-GLAXOSMITHKLINE-A0573693A

PATIENT
  Age: 48 Year
  Sex: Male
  Weight: 144.5 kg

DRUGS (10)
  1. PAXIL [Suspect]
     Indication: DEPRESSION
     Route: 048
     Dates: end: 20050211
  2. COLCHICINE [Suspect]
     Dosage: .6MG TWICE PER DAY
     Route: 048
     Dates: start: 20011001
  3. ATENOLOL [Concomitant]
  4. IBUPROFEN [Concomitant]
  5. FUROSEMIDE [Concomitant]
  6. NPH INSULIN [Concomitant]
  7. LISINOPRIL [Concomitant]
  8. NIFEDIPINE [Concomitant]
  9. OMEPRAZOLE [Concomitant]
  10. SPIRONOLACTONE [Concomitant]

REACTIONS (3)
  - DRUG WITHDRAWAL SYNDROME [None]
  - HOMICIDAL IDEATION [None]
  - MAJOR DEPRESSION [None]
